FAERS Safety Report 9163680 (Version 1)
Quarter: 2013Q1

REPORT INFORMATION
  Report Type: Spontaneous
  Country: NL (occurrence: NL)
  Receive Date: 20130314
  Receipt Date: 20130314
  Transmission Date: 20140127
  Serious: Yes (Hospitalization, Other)
  Sender: FDA-Public Use
  Company Number: NL-ROXANE LABORATORIES, INC.-2013-RO-00358RO

PATIENT
  Age: 25 Year
  Sex: Male

DRUGS (4)
  1. PROPRANOLOL [Suspect]
     Indication: TACHYCARDIA
     Dosage: 60 MG
  2. CLOZAPINE [Suspect]
     Indication: SCHIZOPHRENIA
     Dosage: 400 MG
  3. FLUVOXAMINE [Suspect]
     Indication: SCHIZOPHRENIA
  4. IVABRADINE [Suspect]
     Indication: TACHYCARDIA

REACTIONS (8)
  - Psoriasis [Not Recovered/Not Resolved]
  - Obesity [Unknown]
  - Metabolic syndrome [Unknown]
  - Hypertension [Unknown]
  - Dyslipidaemia [Unknown]
  - Hyperglycaemia [Unknown]
  - Activities of daily living impaired [Unknown]
  - Quality of life decreased [Unknown]
